FAERS Safety Report 9789973 (Version 2)
Quarter: 2014Q1

REPORT INFORMATION
  Report Type: Spontaneous
  Country: ES (occurrence: ES)
  Receive Date: 20131231
  Receipt Date: 20140114
  Transmission Date: 20141002
  Serious: Yes (Other)
  Sender: FDA-Public Use
  Company Number: ES-AMGEN-ESPSP2013090512

PATIENT
  Sex: Female

DRUGS (1)
  1. NPLATE [Suspect]
     Indication: THROMBOCYTOPENIC PURPURA
     Dosage: 250 MUG, UNK
     Route: 065

REACTIONS (3)
  - Ear infection [Not Recovered/Not Resolved]
  - Deafness [Unknown]
  - Nasopharyngitis [Unknown]
